FAERS Safety Report 18568871 (Version 1)
Quarter: 2020Q4

REPORT INFORMATION
  Report Type: Spontaneous
  Country: US (occurrence: US)
  Receive Date: 20201201
  Receipt Date: 20201201
  Transmission Date: 20210114
  Serious: Yes (Hospitalization)
  Sender: FDA-Public Use
  Company Number: None

PATIENT
  Age: 14 Year
  Sex: Male
  Weight: 80.1 kg

DRUGS (6)
  1. ONCASPAR [Suspect]
     Active Substance: PEGASPARGASE
     Dosage: ?          OTHER DOSE:5100IU;?
     Dates: end: 20201107
  2. DAUNORUBICIN [Suspect]
     Active Substance: DAUNORUBICIN
     Dates: end: 20201117
  3. VINCRISTINE SULFATE. [Suspect]
     Active Substance: VINCRISTINE SULFATE
     Dates: end: 20201117
  4. PREDNISOLONE. [Suspect]
     Active Substance: PREDNISOLONE
     Dates: end: 20201123
  5. CYTARABINE. [Suspect]
     Active Substance: CYTARABINE
     Dates: end: 20201102
  6. METHOTREXATE. [Suspect]
     Active Substance: METHOTREXATE
     Dates: end: 20201110

REACTIONS (12)
  - Hyperbilirubinaemia [None]
  - Aspartate aminotransferase increased [None]
  - Transaminases increased [None]
  - Biliary obstruction [None]
  - Hepatitis infectious mononucleosis [None]
  - Lipase abnormal [None]
  - Cholangitis [None]
  - Blood alkaline phosphatase increased [None]
  - Thrombocytopenia [None]
  - Bilirubin conjugated increased [None]
  - Alanine aminotransferase increased [None]
  - Cytomegalovirus hepatitis [None]

NARRATIVE: CASE EVENT DATE: 20201121
